FAERS Safety Report 10267713 (Version 1)
Quarter: 2014Q2

REPORT INFORMATION
  Report Type: Spontaneous
  Country: SG (occurrence: SG)
  Receive Date: 20140630
  Receipt Date: 20140630
  Transmission Date: 20141212
  Serious: Yes (Hospitalization)
  Sender: FDA-Public Use
  Company Number: SG-BAYER-2014-092763

PATIENT
  Age: 77 Year
  Sex: Male

DRUGS (3)
  1. CIPROFLOXACIN [Suspect]
     Dosage: 500 MG, BID
     Route: 048
     Dates: start: 20140514, end: 20140515
  2. GENTAMICIN [Suspect]
     Dosage: 160 MG, UNK
     Route: 030
     Dates: start: 20140515, end: 20140515
  3. LIDOCAINE [Suspect]
     Dosage: PERI-ANAL LOCAL
     Route: 061

REACTIONS (2)
  - Dysphonia [Recovered/Resolved]
  - Drug eruption [Recovered/Resolved]
